FAERS Safety Report 14099915 (Version 1)
Quarter: 2017Q4

REPORT INFORMATION
  Report Type: Spontaneous
  Country: DE (occurrence: DE)
  Receive Date: 20171017
  Receipt Date: 20171017
  Transmission Date: 20180321
  Serious: Yes (Hospitalization, Other)
  Sender: FDA-Public Use
  Company Number: DE-PFIZER INC-2017440114

PATIENT
  Age: 47 Year
  Sex: Female
  Weight: 84 kg

DRUGS (1)
  1. LYRICA [Suspect]
     Active Substance: PREGABALIN
     Indication: NEURALGIA
     Dosage: 150 MG, 2X/DAY
     Route: 048
     Dates: start: 201708, end: 20170908

REACTIONS (4)
  - Rales [Recovered/Resolved]
  - Dizziness [Not Recovered/Not Resolved]
  - Circulatory collapse [Not Recovered/Not Resolved]
  - Wheezing [Recovered/Resolved]

NARRATIVE: CASE EVENT DATE: 20170905
